FAERS Safety Report 8544633-X (Version None)
Quarter: 2012Q3

REPORT INFORMATION
  Report Type: 
  Country: None (occurrence: None)
  Receive Date: 20120727
  Receipt Date: 20120720
  Transmission Date: 20120928
  Serious: Yes (Other)
  Sender: FDA-Public Use
  Company Number: BR-PFIZER INC-2012154845

PATIENT
  Age: 45 Year
  Sex: Female

DRUGS (2)
  1. XALCOM [Suspect]
     Indication: GLAUCOMA
     Dosage: ONE DROP IN EACH EYE, 2X/DAY
     Route: 047
     Dates: start: 20120127, end: 20120101
  2. XALATAN [Suspect]
     Dosage: ONE DROP EACH EYE, 2X/DAY
     Dates: start: 20120720

REACTIONS (2)
  - OFF LABEL USE [None]
  - BLINDNESS [None]
